FAERS Safety Report 7138052-0 (Version None)
Quarter: 2010Q4

REPORT INFORMATION
  Report Type: 
  Country: None (occurrence: None)
  Receive Date: 20101103
  Receipt Date: 20100827
  Transmission Date: 20110411
  Serious: Yes (Other)
  Sender: FDA-Public Use
  Company Number: US-WYE-H17208410

PATIENT
  Sex: Female

DRUGS (2)
  1. EFFEXOR XR [Suspect]
     Indication: BIPOLAR DISORDER
     Dosage: 75 MG 1X PER ` DAY, ORAL; DOSE WAS REDUCED, ORAL; INCREASED TO UNKNOWN DOSE, ORAL
     Route: 048
     Dates: start: 20060101
  2. KLONOPIN [Concomitant]

REACTIONS (14)
  - BLOOD PRESSURE INCREASED [None]
  - BODY TEMPERATURE INCREASED [None]
  - DECREASED APPETITE [None]
  - ENERGY INCREASED [None]
  - FATIGUE [None]
  - FEELING ABNORMAL [None]
  - HYPERHIDROSIS [None]
  - INSOMNIA [None]
  - INTENTIONAL DRUG MISUSE [None]
  - NONSPECIFIC REACTION [None]
  - SEROTONIN SYNDROME [None]
  - SEXUAL DYSFUNCTION [None]
  - SOMNOLENCE [None]
  - WEIGHT DECREASED [None]
